FAERS Safety Report 6807284-0 (Version None)
Quarter: 2010Q2

REPORT INFORMATION
  Report Type: 
  Country: None (occurrence: None)
  Receive Date: 20100628
  Receipt Date: 20100628
  Transmission Date: 20101027
  Serious: Yes (Life-Threatening, Other)
  Sender: FDA-Public Use
  Company Number: None

PATIENT
  Age: 61 Year
  Sex: Female
  Weight: 67.586 kg

DRUGS (2)
  1. MULTAQ [Suspect]
     Indication: ATRIAL FIBRILLATION
     Dosage: 400MG 2X/DAY PO AFTER 06/22/10 - 200MG 2X /DAY
     Route: 048
     Dates: start: 20100617, end: 20100624
  2. ASPIRIN [Concomitant]

REACTIONS (11)
  - ANXIETY [None]
  - ATRIAL FIBRILLATION [None]
  - CHEST PAIN [None]
  - CONFUSIONAL STATE [None]
  - DEHYDRATION [None]
  - DRUG HYPERSENSITIVITY [None]
  - DYSPNOEA [None]
  - HEART RATE INCREASED [None]
  - NERVOUS SYSTEM DISORDER [None]
  - SINUS BRADYCARDIA [None]
  - URINE OUTPUT INCREASED [None]
